FAERS Safety Report 5645097-6 (Version None)
Quarter: 2008Q1

REPORT INFORMATION
  Report Type: 
  Country: None (occurrence: None)
  Receive Date: 20080229
  Receipt Date: 20080207
  Transmission Date: 20080703
  Serious: Yes (Other)
  Sender: FDA-Public Use
  Company Number: FR-JNJFOC-20070401879

PATIENT
  Age: 35 Year
  Sex: Female
  Weight: 90 kg

DRUGS (4)
  1. REMICADE [Suspect]
     Indication: CROHN'S DISEASE
     Route: 042
  2. IMUREL [Concomitant]
     Route: 065
  3. DEROXAT [Concomitant]
  4. XANAX [Concomitant]

REACTIONS (3)
  - DRUG EXPOSURE DURING PREGNANCY [None]
  - HYPERTENSION [None]
  - PROTEINURIA [None]
